FAERS Safety Report 9880838 (Version 1)
Quarter: 2014Q1

REPORT INFORMATION
  Report Type: Spontaneous
  Country: IT (occurrence: None)
  Receive Date: 20140205
  Receipt Date: 20140205
  Transmission Date: 20141002
  Serious: Yes (Hospitalization)
  Sender: FDA-Public Use
  Company Number: 2153161

PATIENT
  Age: 76 Year
  Sex: Female
  Weight: 43 kg

DRUGS (8)
  1. PACLITAXEL [Suspect]
     Indication: PRODUCT USED FOR UNKNOWN INDICATION
     Dates: start: 20140110, end: 20140110
  2. CARBOPLATIN TEVA [Concomitant]
  3. PANTOPRAZOLO [Concomitant]
  4. FRAGMIN [Concomitant]
  5. RANITIDINA ANGENERICO [Concomitant]
  6. CETIRIZINA [Concomitant]
  7. KANRENOL [Concomitant]
  8. SUPRADYN [Concomitant]

REACTIONS (9)
  - Hyperaemia [None]
  - Cyanosis [None]
  - Dyspnoea [None]
  - Hypotension [None]
  - Malaise [None]
  - Cold sweat [None]
  - Oxygen saturation decreased [None]
  - General physical health deterioration [None]
  - Hypersensitivity [None]
